FAERS Safety Report 17698873 (Version 1)
Quarter: 2020Q2

REPORT INFORMATION
  Report Type: Spontaneous
  Country: US (occurrence: US)
  Receive Date: 20200423
  Receipt Date: 20200423
  Transmission Date: 20200714
  Serious: No
  Sender: FDA-Public Use
  Company Number: US-BRISTOL-MYERS SQUIBB COMPANY-BMS-2020-032711

PATIENT
  Age: 87 Year
  Sex: Male

DRUGS (2)
  1. SOTALOL. [Suspect]
     Active Substance: SOTALOL
     Indication: PRODUCT USED FOR UNKNOWN INDICATION
     Dosage: 80 MILLIGRAM, BID
     Route: 065
     Dates: start: 201912
  2. ELIQUIS [Suspect]
     Active Substance: APIXABAN
     Indication: CEREBROVASCULAR ACCIDENT PROPHYLAXIS
     Dosage: 5 MILLIGRAM, BID
     Route: 065
     Dates: start: 201912

REACTIONS (3)
  - Fatigue [Unknown]
  - Lethargy [Unknown]
  - Asthenia [Unknown]
